FAERS Safety Report 16223270 (Version 2)
Quarter: 2019Q2

REPORT INFORMATION
  Report Type: Spontaneous
  Country: US (occurrence: US)
  Receive Date: 20190422
  Receipt Date: 20190426
  Transmission Date: 20190711
  Serious: No
  Sender: FDA-Public Use
  Company Number: US-PFIZER INC-2018250557

PATIENT
  Age: 84 Year
  Sex: Male
  Weight: 71 kg

DRUGS (2)
  1. XALKORI [Suspect]
     Active Substance: CRIZOTINIB
     Indication: LUNG NEOPLASM MALIGNANT
  2. XALKORI [Suspect]
     Active Substance: CRIZOTINIB
     Indication: NEOPLASM MALIGNANT
     Dosage: 200 MG, 2X/DAY(ONE CAPSULE BY MOUTH TWICE A DAY)
     Route: 048
     Dates: start: 201802

REACTIONS (2)
  - Oedema [Unknown]
  - Peripheral swelling [Unknown]
